FAERS Safety Report 9782654 (Version 2)
Quarter: 2014Q1

REPORT INFORMATION
  Report Type: Report from Study
  Country: US (occurrence: US)
  Receive Date: 20131226
  Receipt Date: 20140107
  Transmission Date: 20141002
  Serious: Yes (Death, Hospitalization, Other)
  Sender: FDA-Public Use
  Company Number: PHEH2013US026375

PATIENT
  Sex: Male

DRUGS (7)
  1. GLEEVEC [Suspect]
     Indication: SKIN CANCER
     Dosage: 400 MG, QD
     Route: 048
     Dates: start: 20130429
  2. GLEEVEC [Suspect]
     Indication: MALIGNANT MELANOMA
  3. GLEEVEC [Suspect]
     Indication: OFF LABEL USE
  4. SANCUSO [Concomitant]
     Dosage: UNK UKN, UNK
  5. NEXIUM 1-2-3 [Concomitant]
     Dosage: UNK UKN, UNK
  6. COMPAZINE [Concomitant]
     Dosage: UNK UKN, UNK
  7. OXYCODONE [Concomitant]
     Dosage: UNK UKN, UNK

REACTIONS (17)
  - Skin cancer [Fatal]
  - Malignant neoplasm progression [Fatal]
  - Malignant melanoma [Fatal]
  - Metastatic neoplasm [Fatal]
  - Malignant ascites [Unknown]
  - Nausea [Unknown]
  - Vomiting [Unknown]
  - Abdominal distension [Unknown]
  - Abdominal discomfort [Recovering/Resolving]
  - General physical health deterioration [Unknown]
  - Atelectasis [Unknown]
  - Lethargy [Unknown]
  - Renal failure acute [Recovered/Resolved]
  - Pleural effusion [Unknown]
  - Dyspnoea exertional [Recovered/Resolved]
  - Pericardial effusion [Unknown]
  - Leukocytosis [Unknown]
